FAERS Safety Report 17742328 (Version 31)
Quarter: 2024Q1

REPORT INFORMATION
  Report Type: Report from Study
  Country: US (occurrence: US)
  Receive Date: 20200504
  Receipt Date: 20240219
  Transmission Date: 20240409
  Serious: Yes (Hospitalization, Other)
  Sender: FDA-Public Use
  Company Number: US-SHIRE-US202015321

PATIENT
  Age: 69 Year
  Sex: Female
  Weight: 76 kg

DRUGS (34)
  1. HUMAN IMMUNOGLOBULIN G [Suspect]
     Active Substance: HUMAN IMMUNOGLOBULIN G
     Indication: Hypergammaglobulinaemia
     Dosage: 20 GRAM, Q2WEEKS
     Route: 058
     Dates: start: 20200219
  2. HUMAN IMMUNOGLOBULIN G [Suspect]
     Active Substance: HUMAN IMMUNOGLOBULIN G
     Dosage: 22 GRAM, Q2WEEKS
     Route: 058
  3. ACETAMINOPHEN [Concomitant]
     Active Substance: ACETAMINOPHEN
     Dosage: UNK
     Route: 065
  4. EPINEPHRINE [Concomitant]
     Active Substance: EPINEPHRINE
     Dosage: UNK
     Route: 065
  5. VITAMIN C [Concomitant]
     Active Substance: ASCORBIC ACID
     Route: 065
  6. VITAMIN D3 [Concomitant]
     Active Substance: CHOLECALCIFEROL
     Dosage: UNK
     Route: 065
  7. Omega [Concomitant]
     Dosage: UNK
     Route: 065
  8. ACIDOPHILUS [Concomitant]
     Active Substance: LACTOBACILLUS ACIDOPHILUS
     Dosage: UNK
     Route: 065
  9. LECITHIN [Concomitant]
     Active Substance: LECITHIN
     Dosage: UNK
     Route: 065
  10. B ACTIVE [Concomitant]
     Dosage: UNK
     Route: 065
  11. TRAZODONE HCL [Concomitant]
     Active Substance: TRAZODONE HYDROCHLORIDE
     Dosage: UNK
     Route: 065
  12. Lmx [Concomitant]
     Dosage: UNK
     Route: 065
  13. DIPHENHYDRAMINE [Concomitant]
     Active Substance: DIPHENHYDRAMINE
     Dosage: UNK
     Route: 065
  14. DIPHENHYDRAMINE HYDROCHLORIDE [Concomitant]
     Active Substance: DIPHENHYDRAMINE HYDROCHLORIDE
     Dosage: UNK
     Route: 065
  15. GABAPENTIN [Concomitant]
     Active Substance: GABAPENTIN
     Dosage: UNK
     Route: 065
  16. NP THYROID [Concomitant]
     Active Substance: LEVOTHYROXINE\LIOTHYRONINE
     Dosage: UNK
     Route: 065
  17. VITAMIN D3 [Concomitant]
     Active Substance: CHOLECALCIFEROL
     Dosage: UNK
     Route: 065
  18. CINNAMON\HERBALS [Concomitant]
     Active Substance: CINNAMON\HERBALS
     Dosage: UNK
     Route: 065
  19. OMEGA 3 [Concomitant]
     Active Substance: CAPSAICIN
     Dosage: UNK
     Route: 065
  20. DOXYCYCLINE HYCLATE [Concomitant]
     Active Substance: DOXYCYCLINE HYCLATE
     Dosage: UNK
     Route: 065
  21. AMINO ACIDS, SOURCE UNSPECIFIED [Concomitant]
     Active Substance: AMINO ACIDS, SOURCE UNSPECIFIED
     Dosage: UNK
     Route: 065
  22. APPLE CIDER VINEGAR [Concomitant]
     Active Substance: APPLE CIDER VINEGAR
     Dosage: UNK
     Route: 065
  23. METFORMIN [Concomitant]
     Active Substance: METFORMIN HYDROCHLORIDE
     Dosage: UNK
     Route: 065
  24. ALPHA LIPOIC ACID [Concomitant]
     Active Substance: .ALPHA.-LIPOIC ACID
     Dosage: UNK
     Route: 065
  25. IODINE [Concomitant]
     Active Substance: IODINE
     Dosage: UNK
     Route: 065
  26. PREMARIN [Concomitant]
     Active Substance: ESTROGENS, CONJUGATED
     Dosage: UNK
     Route: 065
  27. B12 ACTIVE [Concomitant]
     Dosage: UNK
     Route: 065
  28. SINGULAIR [Concomitant]
     Active Substance: MONTELUKAST SODIUM
     Dosage: UNK
     Route: 065
  29. SYNTHROID [Concomitant]
     Active Substance: LEVOTHYROXINE SODIUM
     Dosage: UNK
     Route: 065
  30. DOXYCYCLINE [Concomitant]
     Active Substance: DOXYCYCLINE
     Dosage: UNK
     Route: 065
  31. LEVOTHYROXINE [Concomitant]
     Active Substance: LEVOTHYROXINE\LEVOTHYROXINE SODIUM
     Dosage: UNK
     Route: 065
  32. PROGESTERONE [Concomitant]
     Active Substance: PROGESTERONE
     Dosage: UNK
     Route: 065
  33. PHOSPHATE LAXATIVE [Concomitant]
     Dosage: UNK
     Route: 065
  34. VITAMIN C [Concomitant]
     Active Substance: ASCORBIC ACID
     Dosage: UNK
     Route: 065

REACTIONS (30)
  - Peripheral nerve palsy [Recovering/Resolving]
  - Encephalitis [Unknown]
  - Nephrolithiasis [Not Recovered/Not Resolved]
  - Cataract [Unknown]
  - Allergy to plants [Unknown]
  - Seasonal allergy [Unknown]
  - Injury associated with device [Unknown]
  - Gastroenteritis viral [Unknown]
  - Dark circles under eyes [Unknown]
  - COVID-19 [Unknown]
  - Increased appetite [Unknown]
  - Bursitis [Unknown]
  - Weight increased [Unknown]
  - Glucose tolerance impaired [Unknown]
  - Weight decreased [Unknown]
  - Brain fog [Unknown]
  - Eye infection [Unknown]
  - Insurance issue [Unknown]
  - Sinusitis [Not Recovered/Not Resolved]
  - Abdominal discomfort [Unknown]
  - Infusion site haemorrhage [Unknown]
  - Infusion site reaction [Unknown]
  - Asthenia [Unknown]
  - Injection site erythema [Unknown]
  - Infusion site urticaria [Unknown]
  - Hyperhidrosis [Unknown]
  - Pyrexia [Unknown]
  - Infusion site swelling [Unknown]
  - Pruritus [Unknown]
  - Tooth disorder [Unknown]

NARRATIVE: CASE EVENT DATE: 20221128
